FAERS Safety Report 7403036-1 (Version None)
Quarter: 2011Q2

REPORT INFORMATION
  Report Type: 
  Country: None (occurrence: None)
  Receive Date: 20110408
  Receipt Date: 20110210
  Transmission Date: 20111010
  Serious: No
  Sender: FDA-Public Use
  Company Number: US-NOVEN-11US001767

PATIENT
  Sex: Female

DRUGS (1)
  1. FENTANYL [Suspect]
     Indication: PRODUCT USED FOR UNKNOWN INDICATION
     Dosage: 25 UG QH/Q72HRS
     Route: 062
     Dates: start: 20110130

REACTIONS (3)
  - TREMOR [None]
  - NERVOUSNESS [None]
  - INADEQUATE ANALGESIA [None]
